FAERS Safety Report 11169947 (Version 1)
Quarter: 2015Q2

REPORT INFORMATION
  Report Type: Spontaneous
  Country: IN (occurrence: None)
  Receive Date: 20150604
  Receipt Date: 20150604
  Transmission Date: 20150821
  Serious: Yes (Other)
  Sender: FDA-Public Use
  Company Number: IN2015GSK074278

PATIENT
  Age: 45 Year
  Sex: Male

DRUGS (9)
  1. TENOFOVIR DISOPROXIL FUMARATE (TENOFOVIR DISOPROXIL FUMARATE) UNKNOWN [Suspect]
     Active Substance: TENOFOVIR DISOPROXIL FUMARATE
     Indication: HIV INFECTION
  2. LOPINAVIR AND RITONAVIR [Suspect]
     Active Substance: LOPINAVIR\RITONAVIR
     Indication: HIV INFECTION
  3. EFAVIRENZ (EFAVIRENZ) [Suspect]
     Active Substance: EFAVIRENZ
     Indication: HIV INFECTION
  4. ABACAVIR (ABACAVIR SULPHATE) UNKNOWN [Suspect]
     Active Substance: ABACAVIR
     Indication: HIV INFECTION
  5. STAVUDINE (STAVUDINE) [Suspect]
     Active Substance: STAVUDINE
     Indication: HIV INFECTION
  6. ZIDOVUDINE. [Suspect]
     Active Substance: ZIDOVUDINE
     Indication: HIV INFECTION
  7. LAMIVUDINE (LAMIVUDINE) [Suspect]
     Active Substance: LAMIVUDINE
     Indication: HIV INFECTION
  8. NEVIRAPINE (NEVIRAPINE) [Suspect]
     Active Substance: NEVIRAPINE
     Indication: HIV INFECTION
  9. SAQUINAVIR [Suspect]
     Active Substance: SAQUINAVIR
     Indication: HIV INFECTION

REACTIONS (9)
  - Treatment failure [None]
  - Pulmonary tuberculosis [None]
  - Virologic failure [None]
  - Anaemia [None]
  - Drug resistance [None]
  - Inappropriate schedule of drug administration [None]
  - Immune system disorder [None]
  - Gastritis [None]
  - Underdose [None]

NARRATIVE: CASE EVENT DATE: 200512
